FAERS Safety Report 7256624-X (Version None)
Quarter: 2011Q1

REPORT INFORMATION
  Report Type: 
  Country: None (occurrence: None)
  Receive Date: 20110129
  Receipt Date: 20100808
  Transmission Date: 20110831
  Serious: No
  Sender: FDA-Public Use
  Company Number: US-ABBOTT-10P-163-0662999-00

PATIENT
  Age: 56 Year
  Sex: Female

DRUGS (12)
  1. DIOVAN [Concomitant]
     Indication: BLOOD PRESSURE
  2. LUNESTA [Concomitant]
     Indication: INSOMNIA
  3. HYDROXYZINE HCL [Concomitant]
     Indication: PSORIASIS
  4. HYDROXYZINE HCL [Concomitant]
     Indication: PRURITUS
  5. HUMIRA [Suspect]
     Indication: PSORIASIS
     Dates: start: 20100601
  6. HYDROCODONE [Concomitant]
     Indication: PAIN
  7. LYRICA [Concomitant]
     Indication: FIBROMYALGIA
  8. CRESTOR [Concomitant]
     Indication: BLOOD CHOLESTEROL
  9. HYDROCHLOROTHIAZIDE [Concomitant]
     Indication: FLUID RETENTION
  10. METFORMIN [Concomitant]
     Indication: DIABETES MELLITUS
  11. ASA [Concomitant]
     Indication: PRODUCT USED FOR UNKNOWN INDICATION
  12. XANAX [Concomitant]
     Indication: NERVOUSNESS

REACTIONS (10)
  - EAR DISCOMFORT [None]
  - PYREXIA [None]
  - EYE SWELLING [None]
  - RASH [None]
  - WHEEZING [None]
  - SWELLING FACE [None]
  - FEELING ABNORMAL [None]
  - NASAL CONGESTION [None]
  - INFLUENZA [None]
  - PSORIASIS [None]
